FAERS Safety Report 23960700 (Version 1)
Quarter: 2024Q2

REPORT INFORMATION
  Report Type: Spontaneous
  Country: CA (occurrence: CA)
  Receive Date: 20240611
  Receipt Date: 20240611
  Transmission Date: 20240716
  Serious: Yes (Other)
  Sender: FDA-Public Use
  Company Number: CA-PFIZER INC-202400190475

PATIENT
  Age: 3 Year
  Sex: Male

DRUGS (10)
  1. KETOROLAC TROMETHAMINE [Suspect]
     Active Substance: KETOROLAC TROMETHAMINE
     Indication: Procedural pain
     Dosage: 8 MG, 1 EVERY 6 HOURS
     Route: 042
  2. IBUPROFEN [Suspect]
     Active Substance: IBUPROFEN
     Indication: Procedural pain
     Dosage: 150 MG, 1 EVERY 6 HOURS
     Route: 048
  3. ACETAMINOPHEN [Concomitant]
     Active Substance: ACETAMINOPHEN
     Dosage: 240 MG, 1 EVERY 6 HOURS
     Route: 048
  4. FENTANYL [Concomitant]
     Active Substance: FENTANYL\FENTANYL CITRATE
     Dosage: 15 UG, SINGLE
     Route: 045
  5. IRON SUCROSE [Concomitant]
     Active Substance: IRON SUCROSE
     Dosage: 80 MG, SINGLE
     Route: 042
  6. MORPHINE [Concomitant]
     Active Substance: MORPHINE
     Dosage: 50 MG
     Route: 042
  7. MORPHINE [Concomitant]
     Active Substance: MORPHINE
     Dosage: 1 MG
  8. ONDANSETRON [Concomitant]
     Active Substance: ONDANSETRON
     Dosage: 1.5 MG, 1 EVERY 6 HOURS
     Route: 042
  9. PHYTONADIONE [Concomitant]
     Active Substance: PHYTONADIONE
     Dosage: 5 MG, SINGLE
     Route: 042
  10. PIPERACILLIN SODIUM\TAZOBACTAM SODIUM [Concomitant]
     Active Substance: PIPERACILLIN SODIUM\TAZOBACTAM SODIUM
     Dosage: 1200 MG, 1 EVERY 6 HOURS

REACTIONS (10)
  - Abdominal distension [Recovered/Resolved]
  - Abdominal tenderness [Recovered/Resolved]
  - Diarrhoea [Recovered/Resolved]
  - Discoloured vomit [Recovered/Resolved]
  - Erythema [Recovered/Resolved]
  - Faeces discoloured [Recovered/Resolved]
  - Gastric ulcer [Recovered/Resolved]
  - Gastritis erosive [Recovered/Resolved]
  - Haemoglobin decreased [Recovered/Resolved]
  - Off label use [Unknown]
